FAERS Safety Report 4688905-8 (Version None)
Quarter: 2005Q2

REPORT INFORMATION
  Report Type: 
  Country: None (occurrence: None)
  Receive Date: 20050610
  Receipt Date: 20050530
  Transmission Date: 20051028
  Serious: Yes (Other)
  Sender: FDA-Public Use
  Company Number: 2005080610

PATIENT
  Age: 4 Year
  Sex: Female
  Weight: 14 kg

DRUGS (1)
  1. COOL MINT, LISTERINE (METHOL, METHYL SALICYLATE, EUCALYPTOL, THYMOL) [Suspect]
     Indication: ACCIDENTAL EXPOSURE
     Dosage: 16 OZ ONCE; ORAL
     Route: 048
     Dates: start: 20050530, end: 20050530

REACTIONS (2)
  - ACCIDENTAL DRUG INTAKE BY CHILD [None]
  - POISONING [None]
